FAERS Safety Report 18866257 (Version 1)
Quarter: 2021Q1

REPORT INFORMATION
  Report Type: Spontaneous
  Country: US (occurrence: US)
  Receive Date: 20210208
  Receipt Date: 20210208
  Transmission Date: 20210420
  Serious: No
  Sender: FDA-Public Use
  Company Number: None

PATIENT
  Age: 51 Year
  Sex: Female
  Weight: 105.69 kg

DRUGS (1)
  1. ERENUMAB?AOOE (ERENUMAB?AOOE 70MG/ML AUTOINJECTOR, 1ML) [Suspect]
     Active Substance: ERENUMAB-AOOE
     Indication: MIGRAINE WITH AURA
     Dosage: ?          OTHER FREQUENCY:UNKNOWN;?
     Route: 058
     Dates: start: 20201125, end: 20210119

REACTIONS (3)
  - Urticaria [None]
  - Headache [None]
  - Pruritus [None]

NARRATIVE: CASE EVENT DATE: 20210105
